FAERS Safety Report 4509035-1 (Version None)
Quarter: 2004Q4

REPORT INFORMATION
  Report Type: 
  Country: None (occurrence: None)
  Receive Date: 20041122
  Receipt Date: 20041122
  Transmission Date: 20050328
  Serious: Yes (Hospitalization)
  Sender: FDA-Public Use
  Company Number: None

PATIENT
  Age: 39 Year
  Sex: Male
  Weight: 136.0791 kg

DRUGS (6)
  1. PIROXICAM [Suspect]
     Indication: POST PROCEDURAL PAIN
     Dosage: ORAL 10 MG A DAY
     Route: 048
     Dates: start: 20040920, end: 20041005
  2. PIROXICAM [Suspect]
     Indication: SURGERY
     Dosage: ORAL 10 MG A DAY
     Route: 048
     Dates: start: 20040920, end: 20041005
  3. METHADONE HCL [Concomitant]
  4. ELAVIL [Concomitant]
  5. NEURONTIN [Concomitant]
  6. ROXICODONE [Concomitant]

REACTIONS (2)
  - OEDEMA [None]
  - RENAL FAILURE [None]
